FAERS Safety Report 19679409 (Version 1)
Quarter: 2021Q3

REPORT INFORMATION
  Report Type: Spontaneous
  Country: CN (occurrence: CN)
  Receive Date: 20210810
  Receipt Date: 20210810
  Transmission Date: 20211014
  Serious: Yes (Life-Threatening, Hospitalization)
  Sender: FDA-Public Use
  Company Number: CN-ELI_LILLY_AND_COMPANY-CN202108001706

PATIENT
  Age: 67 Year
  Sex: Male

DRUGS (3)
  1. PEMBROLIZUMAB. [Suspect]
     Active Substance: PEMBROLIZUMAB
     Indication: LUNG NEOPLASM MALIGNANT
     Dosage: 200 MG, UNKNOWN
     Route: 065
     Dates: start: 201905
  2. CARBOPLATIN. [Suspect]
     Active Substance: CARBOPLATIN
     Indication: LUNG NEOPLASM MALIGNANT
     Dosage: 400 MG, UNKNOWN
     Route: 065
     Dates: start: 201905
  3. PEMETREXED. [Suspect]
     Active Substance: PEMETREXED
     Indication: LUNG NEOPLASM MALIGNANT
     Dosage: 900 MG, UNKNOWN
     Route: 065
     Dates: start: 201905

REACTIONS (4)
  - Myasthenia gravis crisis [Recovering/Resolving]
  - Immune-mediated lung disease [Recovering/Resolving]
  - Myocarditis [Recovering/Resolving]
  - Multiple organ dysfunction syndrome [Recovering/Resolving]
